FAERS Safety Report 17183137 (Version 1)
Quarter: 2019Q4

REPORT INFORMATION
  Report Type: Spontaneous
  Country: US (occurrence: US)
  Receive Date: 20191220
  Receipt Date: 20191220
  Transmission Date: 20200122
  Serious: No
  Sender: FDA-Public Use
  Company Number: US-BIOGEN-2013BI045514

PATIENT
  Sex: Male

DRUGS (3)
  1. AVONEX PEN [Suspect]
     Active Substance: INTERFERON BETA-1A
     Indication: MULTIPLE SCLEROSIS
     Route: 030
     Dates: start: 20050323, end: 20130328
  2. AVONEX [Suspect]
     Active Substance: INTERFERON BETA-1A
     Indication: MULTIPLE SCLEROSIS
     Route: 030
     Dates: start: 20040815, end: 20050109
  3. AVONEX PEN [Suspect]
     Active Substance: INTERFERON BETA-1A
     Route: 030

REACTIONS (1)
  - Trigeminal neuralgia [Recovered/Resolved]

NARRATIVE: CASE EVENT DATE: 2013
